FAERS Safety Report 21928612 (Version 1)
Quarter: 2023Q1

REPORT INFORMATION
  Report Type: Spontaneous
  Country: US (occurrence: US)
  Receive Date: 20230130
  Receipt Date: 20230130
  Transmission Date: 20230418
  Serious: No
  Sender: FDA-Public Use
  Company Number: US-drreddys-SPO/USA/22/0159028

PATIENT
  Age: 65 Year
  Sex: Female

DRUGS (23)
  1. LENALIDOMIDE [Suspect]
     Active Substance: LENALIDOMIDE
     Indication: Pulmonary fibrosis
     Route: 048
     Dates: start: 20221111
  2. MORPHINE SUL TAB 30MG [Concomitant]
     Indication: Product used for unknown indication
  3. OXYCODONE HC TAB 30MG [Concomitant]
     Indication: Product used for unknown indication
  4. OXYCONTIN T12 80MG [Concomitant]
     Indication: Product used for unknown indication
  5. TIZANIDINE H CAP 6MG [Concomitant]
     Indication: Product used for unknown indication
  6. PREDNISONE TAB 50MG [Concomitant]
     Indication: Product used for unknown indication
  7. ACYCLOVIR [Concomitant]
     Active Substance: ACYCLOVIR
     Indication: Product used for unknown indication
  8. ALBUTEROL SU AER 108 [Concomitant]
     Indication: Product used for unknown indication
  9. ASPIRIN CHE 81MG [Concomitant]
     Indication: Product used for unknown indication
  10. ATORVASTATIN [Concomitant]
     Active Substance: ATORVASTATIN
     Indication: Product used for unknown indication
  11. ESTRADIOL CRE 0.1MG/GM [Concomitant]
     Indication: Product used for unknown indication
     Dosage: 0.1MG/GM
  12. FUROSEMIDE TAB 40MG [Concomitant]
     Indication: Product used for unknown indication
  13. HYDROCODON - TAB 10-325MG [Concomitant]
     Indication: Product used for unknown indication
     Dosage: 10-325MG
  14. LIDOCAINE-PR CRE 2.5-2.5 [Concomitant]
     Indication: Product used for unknown indication
     Dosage: 2.5-2.5
  15. LORAZEPAM TAB 0.5MG [Concomitant]
     Indication: Product used for unknown indication
  16. MULTIVITAMIN TAB [Concomitant]
     Indication: Product used for unknown indication
  17. POTASSIUM CH TBC 20MEQ [Concomitant]
     Indication: Product used for unknown indication
     Dosage: 20MEQ
  18. SILDENAFIL C TAB 20MG [Concomitant]
     Indication: Product used for unknown indication
  19. SPIRIVA RESP AER 2.5MCG/A [Concomitant]
     Indication: Product used for unknown indication
  20. SYMBICORT AER 160-4.5MCG [Concomitant]
     Indication: Product used for unknown indication
     Dosage: 160-4.5MCG
  21. UNISOM SLEEP TAB 25MG [Concomitant]
     Indication: Product used for unknown indication
  22. ELIQUIS [Concomitant]
     Active Substance: APIXABAN
     Indication: Product used for unknown indication
  23. PANTOPRAZOLE TBE 40MG [Concomitant]
     Indication: Product used for unknown indication

REACTIONS (2)
  - Product administration interrupted [Unknown]
  - Product use in unapproved indication [Unknown]
